FAERS Safety Report 10654628 (Version 2)
Quarter: 2015Q2

REPORT INFORMATION
  Report Type: Spontaneous
  Country: US (occurrence: US)
  Receive Date: 20141216
  Receipt Date: 20150522
  Transmission Date: 20150821
  Serious: No
  Sender: FDA-Public Use
  Company Number: US-PFIZER INC-2014340237

PATIENT
  Age: 74 Year
  Sex: Female
  Weight: 91 kg

DRUGS (1)
  1. MORPHINE SULFATE. [Suspect]
     Active Substance: MORPHINE SULFATE
     Indication: SURGERY
     Dosage: UNK
     Dates: start: 20141123

REACTIONS (4)
  - Memory impairment [Unknown]
  - Hallucination [Recovered/Resolved]
  - Fear of death [Unknown]
  - Feeling abnormal [Recovered/Resolved]

NARRATIVE: CASE EVENT DATE: 20141123
